FAERS Safety Report 25202813 (Version 1)
Quarter: 2025Q2

REPORT INFORMATION
  Report Type: Spontaneous
  Country: US (occurrence: US)
  Receive Date: 20250416
  Receipt Date: 20250416
  Transmission Date: 20250716
  Serious: No
  Sender: GALPHARM INTERNATIONAL
  Company Number: US-PERRIGO-25US003880

PATIENT
  Age: 86 Year
  Sex: Female
  Weight: 78.458 kg

DRUGS (3)
  1. MICONAZOLE 3 COMBINATION PACK [Suspect]
     Active Substance: MICONAZOLE NITRATE
     Indication: Vulvovaginal mycotic infection
     Route: 067
     Dates: start: 20250324, end: 20250324
  2. MICONAZOLE 3 COMBINATION PACK [Suspect]
     Active Substance: MICONAZOLE NITRATE
     Indication: Vulvovaginal mycotic infection
     Route: 061
     Dates: start: 20250324, end: 20250324
  3. AMLODIPINE [Concomitant]
     Active Substance: AMLODIPINE BESYLATE
     Indication: Hypertension
     Route: 065

REACTIONS (4)
  - Vulvovaginal dryness [Recovered/Resolved]
  - Vaginal disorder [Recovered/Resolved]
  - Vulvovaginal burning sensation [Recovered/Resolved]
  - Vulvovaginal swelling [Recovered/Resolved]

NARRATIVE: CASE EVENT DATE: 20250324
